FAERS Safety Report 5846381-3 (Version None)
Quarter: 2008Q3

REPORT INFORMATION
  Report Type: 
  Country: None (occurrence: None)
  Receive Date: 20080815
  Receipt Date: 20080807
  Transmission Date: 20090109
  Serious: Yes (Other)
  Sender: FDA-Public Use
  Company Number: US-AMGEN-QUU300109

PATIENT
  Sex: Female

DRUGS (3)
  1. ENBREL [Suspect]
     Indication: PSORIASIS
     Dates: start: 20071113
  2. ADDERALL 10 [Concomitant]
  3. UNSPECIFIED ANTIBIOTIC [Concomitant]

REACTIONS (1)
  - INTRA-UTERINE DEATH [None]
